FAERS Safety Report 8552790 (Version 4)
Quarter: 2013Q4

REPORT INFORMATION
  Report Type: Spontaneous
  Country: TH (occurrence: TH)
  Receive Date: 20120508
  Receipt Date: 20131106
  Transmission Date: 20140711
  Serious: Yes (Death, Other)
  Sender: FDA-Public Use
  Company Number: TH-009507513-1205USA00702

PATIENT
  Age: 85 Year
  Sex: Female

DRUGS (1)
  1. JANUVIA [Suspect]
     Indication: DIABETES MELLITUS
     Dosage: 1/2 TABLET OD
     Route: 048
     Dates: start: 201104

REACTIONS (2)
  - Renal failure [Fatal]
  - Inadequate diet [Fatal]
